FAERS Safety Report 6231445-5 (Version None)
Quarter: 2009Q2

REPORT INFORMATION
  Report Type: 
  Country: None (occurrence: None)
  Receive Date: 20090616
  Receipt Date: 20090610
  Transmission Date: 20091009
  Serious: No
  Sender: FDA-Public Use
  Company Number: FR-JNJFOC-20090603111

PATIENT
  Age: 60 Year
  Sex: Male

DRUGS (7)
  1. DURAGESIC-100 [Suspect]
     Route: 062
  2. DURAGESIC-100 [Suspect]
     Route: 062
  3. DURAGESIC-100 [Suspect]
     Route: 062
  4. DURAGESIC-100 [Suspect]
     Route: 062
  5. DURAGESIC-100 [Suspect]
     Indication: PAIN
     Route: 062
  6. DOLIPRANE [Concomitant]
  7. ACTISKENAN [Concomitant]
     Dosage: UP TO 4 UNITS PER DAY AS REQUIRED

REACTIONS (4)
  - DRUG DISPENSING ERROR [None]
  - DRUG INEFFECTIVE [None]
  - MEDICATION ERROR [None]
  - THERAPEUTIC RESPONSE DECREASED [None]
